FAERS Safety Report 4615711-2 (Version None)
Quarter: 2005Q1

REPORT INFORMATION
  Report Type: 
  Country: None (occurrence: None)
  Receive Date: 20050317
  Receipt Date: 20050309
  Transmission Date: 20050727
  Serious: Yes (Death, Hospitalization, Other)
  Sender: FDA-Public Use
  Company Number: 163-20785-05030279

PATIENT
  Age: 69 Year
  Sex: Male
  Weight: 84 kg

DRUGS (7)
  1. THALOMID [Suspect]
     Indication: NEUROENDOCRINE TUMOUR
     Dosage: 200 MG, QD, ORAL
     Route: 048
     Dates: start: 20030801, end: 20040429
  2. TEMODAR [Suspect]
     Indication: NEUROENDOCRINE TUMOUR
     Dosage: 150MG/M2 (320-250MG) DAILY, X 7DAYS Q OTHER WEEK, ORAL
     Route: 048
     Dates: start: 20030801, end: 20040429
  3. DOXORUBICIN (DOXORUBICIN) [Suspect]
     Indication: NEUROENDOCRINE TUMOUR
     Dosage: SEE IMAGE
     Dates: start: 20040601, end: 20040601
  4. DOXORUBICIN (DOXORUBICIN) [Suspect]
     Indication: NEUROENDOCRINE TUMOUR
     Dosage: SEE IMAGE
     Dates: start: 20040708, end: 20040708
  5. OCTREOTIDE (OCTREOTIDE) (INJECTION) [Concomitant]
  6. ZOFRAN (ONDASETRON HYDROCHLORIDE) [Concomitant]
  7. SOLU-MEDROL [Concomitant]

REACTIONS (10)
  - CD4 LYMPHOCYTES DECREASED [None]
  - CYTOMEGALOVIRUS COLITIS [None]
  - DISSEMINATED CYTOMEGALOVIRAL INFECTION [None]
  - HERPES ZOSTER [None]
  - LARGE INTESTINAL ULCER HAEMORRHAGE [None]
  - LYMPHOCYTE COUNT DECREASED [None]
  - LYMPHOPENIA [None]
  - MYELITIS TRANSVERSE [None]
  - PARALYSIS [None]
  - WHITE BLOOD CELL COUNT DECREASED [None]
